FAERS Safety Report 23207719 (Version 1)
Quarter: 2023Q4

REPORT INFORMATION
  Report Type: Spontaneous
  Country: US (occurrence: US)
  Receive Date: 20231120
  Receipt Date: 20231120
  Transmission Date: 20240110
  Serious: No
  Sender: FDA-Public Use
  Company Number: US-ELI_LILLY_AND_COMPANY-US202311009083

PATIENT
  Sex: Female

DRUGS (1)
  1. TALTZ [Suspect]
     Active Substance: IXEKIZUMAB
     Indication: Spondylolysis
     Dosage: 80 MG, OTHER (ONCE EVERY FOUR WEEKS)
     Route: 058
     Dates: start: 20230406

REACTIONS (3)
  - Spinal osteoarthritis [Unknown]
  - Mobility decreased [Unknown]
  - Off label use [Unknown]
